FAERS Safety Report 5666625-0 (Version None)
Quarter: 2008Q1

REPORT INFORMATION
  Report Type: 
  Country: None (occurrence: None)
  Receive Date: 20080315
  Receipt Date: 20071217
  Transmission Date: 20080703
  Serious: No
  Sender: FDA-Public Use
  Company Number: US-ABBOTT-07P-163-0431197-00

PATIENT
  Sex: Female
  Weight: 137.27 kg

DRUGS (28)
  1. HUMIRA [Suspect]
     Indication: RHEUMATOID ARTHRITIS
     Route: 058
     Dates: start: 20071215
  2. POMEGRANATE FRUIT [Suspect]
     Indication: DRUG USE FOR UNKNOWN INDICATION
     Dates: start: 20071217
  3. EQUATE TUSSIN [Concomitant]
     Indication: RESPIRATORY TRACT CONGESTION
     Route: 048
  4. PREDNISONE [Concomitant]
     Indication: RHEUMATOID ARTHRITIS
     Route: 048
  5. FENTANYL [Concomitant]
     Indication: BURNING SENSATION
     Route: 062
  6. FENTANYL [Concomitant]
     Indication: MUSCULOSKELETAL STIFFNESS
  7. FENTANYL [Concomitant]
  8. FENTANYL [Concomitant]
  9. TIOTROPIUM BROMIDE [Concomitant]
     Indication: CHRONIC OBSTRUCTIVE PULMONARY DISEASE
     Route: 055
  10. LEVOTHYROXINE SODIUM [Concomitant]
     Indication: HYPOTHYROIDISM
     Route: 048
  11. CLONIDINE [Concomitant]
     Indication: HYPERTENSION
     Route: 048
  12. PRITOR [Concomitant]
     Indication: HYPERTENSION
     Route: 048
  13. PROPRANOLOL [Concomitant]
     Indication: HYPERTENSION
     Route: 048
  14. GABAPENTIN [Concomitant]
     Indication: MUSCULOSKELETAL STIFFNESS
     Route: 048
  15. GABAPENTIN [Concomitant]
     Indication: PAIN
  16. NABUMETONE [Concomitant]
     Indication: PAIN
     Route: 048
  17. NABUMETONE [Concomitant]
     Indication: MUSCULOSKELETAL STIFFNESS
  18. MAGNESIUM SR [Concomitant]
     Indication: BLOOD MAGNESIUM DECREASED
     Route: 048
  19. FOLIC ACID [Concomitant]
     Indication: IMMUNE SYSTEM DISORDER
     Route: 048
  20. GLIMEPIRIDE [Concomitant]
     Indication: BLOOD GLUCOSE ABNORMAL
     Route: 048
  21. POTASSIUM CHLORIDE [Concomitant]
     Indication: HYPOKALAEMIA
     Route: 048
  22. FUROSEMIDE [Concomitant]
     Indication: HYPERTENSION
     Route: 048
  23. VERAMYST [Concomitant]
     Indication: RHINORRHOEA
     Route: 045
  24. SERETIDE [Concomitant]
     Indication: DRUG USE FOR UNKNOWN INDICATION
  25. VICODIN [Concomitant]
     Indication: PAIN
     Route: 048
  26. MAGNESIUM HYDROXIDE TAB [Concomitant]
     Indication: CONSTIPATION PROPHYLAXIS
     Route: 048
  27. DIAZEPAM [Concomitant]
     Indication: NERVOUSNESS
  28. MORPHINE [Concomitant]
     Indication: PAIN
     Route: 048

REACTIONS (3)
  - ERYTHEMA [None]
  - PRURITUS [None]
  - RASH [None]
